FAERS Safety Report 13258827 (Version 4)
Quarter: 2017Q1

REPORT INFORMATION
  Report Type: Spontaneous
  Country: ID (occurrence: ID)
  Receive Date: 20170222
  Receipt Date: 20170302
  Transmission Date: 20170428
  Serious: Yes (Death)
  Sender: FDA-Public Use
  Company Number: ID-JNJFOC-20170218294

PATIENT
  Age: 80 Year
  Sex: Male

DRUGS (1)
  1. ABIRATERONE ACETATE [Suspect]
     Active Substance: ABIRATERONE ACETATE
     Indication: PROSTATE CANCER METASTATIC
     Route: 048

REACTIONS (5)
  - Prostatic specific antigen increased [Unknown]
  - Off label use [Unknown]
  - Death [Fatal]
  - Adverse drug reaction [Unknown]
  - Product use issue [Unknown]
